FAERS Safety Report 10726210 (Version 2)
Quarter: 2015Q1

REPORT INFORMATION
  Report Type: Report from Study
  Country: CO (occurrence: CO)
  Receive Date: 20150121
  Receipt Date: 20150203
  Transmission Date: 20150721
  Serious: Yes (Other)
  Sender: FDA-Public Use
  Company Number: PHHY2015CO004970

PATIENT
  Age: 75 Year
  Sex: Female

DRUGS (2)
  1. EPAMIN [Concomitant]
     Active Substance: PHENYTOIN SODIUM
     Indication: PRODUCT USED FOR UNKNOWN INDICATION
     Dosage: 100 MG, BID
     Route: 065
  2. SANDOSTATIN LAR DEPOT [Suspect]
     Active Substance: OCTREOTIDE ACETATE
     Indication: NEOPLASM MALIGNANT
     Dosage: 30 MG, QMO
     Route: 065
     Dates: end: 201405

REACTIONS (7)
  - Metastases to liver [Unknown]
  - Vomiting [Unknown]
  - Drug ineffective [Unknown]
  - Metastases to spleen [Unknown]
  - Metastases to stomach [Unknown]
  - Malnutrition [Unknown]
  - Diarrhoea [Unknown]
